FAERS Safety Report 24741890 (Version 1)
Quarter: 2024Q4

REPORT INFORMATION
  Report Type: Spontaneous
  Country: US (occurrence: US)
  Receive Date: 20241217
  Receipt Date: 20241217
  Transmission Date: 20250115
  Serious: Yes (Hospitalization, Other)
  Sender: Unknown Manufacturer
  Company Number: US-862174955-ML2024-06477

PATIENT
  Age: 71 Year
  Sex: Female

DRUGS (7)
  1. TOBRAMYCIN [Suspect]
     Active Substance: TOBRAMYCIN\TOBRAMYCIN SULFATE
     Indication: Device related infection
     Dosage: HIGH-DOSE TOBRAMYCIN SPACERS
  2. TOBRAMYCIN [Suspect]
     Active Substance: TOBRAMYCIN\TOBRAMYCIN SULFATE
     Indication: Arthritis infective
  3. AMPICILLIN [Suspect]
     Active Substance: AMPICILLIN
     Indication: Arthritis infective
  4. AMPICILLIN [Suspect]
     Active Substance: AMPICILLIN
     Indication: Device related infection
  5. PREDNISOLONE [Concomitant]
     Active Substance: PREDNISOLONE
     Indication: Rheumatoid arthritis
  6. VANCOMYCIN [Concomitant]
     Active Substance: VANCOMYCIN
     Indication: Device related infection
  7. VANCOMYCIN [Concomitant]
     Active Substance: VANCOMYCIN
     Indication: Arthritis infective

REACTIONS (2)
  - Renal failure [Recovered/Resolved]
  - Acute kidney injury [Recovered/Resolved]
